FAERS Safety Report 7323791-9 (Version None)
Quarter: 2011Q1

REPORT INFORMATION
  Report Type: 
  Country: None (occurrence: None)
  Receive Date: 20110301
  Receipt Date: 20110222
  Transmission Date: 20110831
  Serious: Yes (Death, Hospitalization, Other)
  Sender: FDA-Public Use
  Company Number: CA-ELI_LILLY_AND_COMPANY-CA201102006770

PATIENT

DRUGS (2)
  1. VELCADE [Concomitant]
     Indication: MANTLE CELL LYMPHOMA
     Dosage: 1 MG/M2, UNK
     Route: 042
  2. GEMZAR [Suspect]
     Indication: MANTLE CELL LYMPHOMA
     Dosage: 1000 MG/M2,  ON DAY ONE AND EIGHT
     Route: 042

REACTIONS (5)
  - DYSPNOEA [None]
  - LUNG INFILTRATION [None]
  - ANAEMIA [None]
  - PLEURAL EFFUSION [None]
  - DEATH [None]
